FAERS Safety Report 16894454 (Version 8)
Quarter: 2021Q1

REPORT INFORMATION
  Report Type: Spontaneous
  Country: US (occurrence: US)
  Receive Date: 20191008
  Receipt Date: 20210204
  Transmission Date: 20210419
  Serious: No
  Sender: FDA-Public Use
  Company Number: US-PFIZER INC-2019429973

PATIENT
  Age: 66 Year
  Sex: Female
  Weight: 57.61 kg

DRUGS (46)
  1. SUTENT [Suspect]
     Active Substance: SUNITINIB MALATE
     Dosage: UNK
     Dates: start: 20200624
  2. ASPIRIN [ACETYLSALICYLIC ACID] [Concomitant]
     Active Substance: ASPIRIN
     Dosage: 81 MG, DAILY
     Route: 048
  3. DECADRON [Concomitant]
     Active Substance: DEXAMETHASONE
     Dosage: 16 MG, 2X/DAY
     Route: 048
     Dates: start: 20200630, end: 20200714
  4. DURAGESIC [Concomitant]
     Active Substance: FENTANYL
     Dosage: 1 DF (PATCH 72 HR 12 MCG/HR EVERY 72 HOURS FOR 30 DAYS)
     Route: 062
     Dates: start: 20191113, end: 20191213
  5. FLUZONE [FLUCONAZOLE] [Concomitant]
     Active Substance: FLUCONAZOLE
     Dosage: UNK
     Route: 030
     Dates: start: 201810, end: 20191220
  6. ZOFRAN [Concomitant]
     Active Substance: ONDANSETRON HYDROCHLORIDE
     Dosage: UNK
     Dates: start: 20200127
  7. NYSTATIN. [Concomitant]
     Active Substance: NYSTATIN
     Dosage: 100000 IU/ML (SUSPENSION MOUTH/THROAT)
     Dates: start: 20200127, end: 20200828
  8. PAXIL [PIROXICAM] [Concomitant]
     Active Substance: PIROXICAM
     Dosage: UNK
     Dates: start: 20191216
  9. VITAMIN D3 [Concomitant]
     Active Substance: CHOLECALCIFEROL
     Dosage: 2000 IU, DAILY (1 CAPSULE ORAL DAILY)
     Route: 048
     Dates: end: 20200828
  10. CALTRATE WITH VITAMIN D [Concomitant]
     Active Substance: CALCIUM CARBONATE\CHOLECALCIFEROL
     Dosage: 1 DF, DAILY
     Route: 048
  11. COREG [Concomitant]
     Active Substance: CARVEDILOL
     Dosage: 6.25 MG, 2X/DAY
     Route: 048
     Dates: end: 20200828
  12. DEXAMETHASONE. [Concomitant]
     Active Substance: DEXAMETHASONE
     Dosage: 2 MG, 2X/DAY
     Route: 048
     Dates: start: 20200717, end: 20201111
  13. LEVOTHYROXINE SODIUM. [Concomitant]
     Active Substance: LEVOTHYROXINE SODIUM
     Dosage: 12.5 MG, DAILY
     Route: 048
     Dates: start: 20200221, end: 20200421
  14. K PHOS NEUTRAL [Concomitant]
     Active Substance: POTASSIUM PHOSPHATE, MONOBASIC\SODIUM PHOSPHATE, DIBASIC, ANHYDROUS\SODIUM PHOSPHATE, MONOBASIC, MONOHYDRATE
     Dosage: 1 DF, 2X/DAY (280?160?250 MG)
     Route: 048
     Dates: end: 20200828
  15. SUTENT [Suspect]
     Active Substance: SUNITINIB MALATE
     Dosage: 25 MG, CYCLIC (TAKE DAILY ON DAYS 1?28 WITH OR WITHOUT FOOD 4 WEEKS)
     Route: 048
  16. SUTENT [Suspect]
     Active Substance: SUNITINIB MALATE
     Dosage: 12.5 MG, CYCLIC
     Route: 048
  17. HEPARIN LOCK FLUSH [Concomitant]
     Active Substance: HEPARIN SODIUM
     Dosage: 5 ML (ONCE PUSH)
     Route: 042
     Dates: start: 20191018, end: 20210120
  18. ALDACTONE [Concomitant]
     Active Substance: SPIRONOLACTONE
     Dosage: UNK (TAKE TABLET ORAL)
     Route: 048
     Dates: end: 20200422
  19. OXYCODONE HYDROCHLORIDE. [Concomitant]
     Active Substance: OXYCODONE HYDROCHLORIDE
     Dosage: 5 MG, AS NEEDED (EVERY 4 TO 6 HOURS FOR 30 DAYS)
     Route: 048
     Dates: start: 20200103, end: 20200306
  20. ROBAXIN [Concomitant]
     Active Substance: METHOCARBAMOL
     Dosage: 750 MG, AS NEEDED (FOR 30 DAYS)
     Route: 048
     Dates: start: 20190924, end: 20191024
  21. DEXAMETHASONE. [Concomitant]
     Active Substance: DEXAMETHASONE
     Dosage: UNK UNK, AS NEEDED
     Route: 048
     Dates: end: 20200422
  22. PEMBROLIZUMAB. [Concomitant]
     Active Substance: PEMBROLIZUMAB
     Dosage: 200 MG, DAILY (INTERMITTENT OVER 30 MINUTES FOR 1 DAY IN NS 100 ML)
     Route: 042
     Dates: start: 20190926, end: 20200131
  23. ALEVE [Concomitant]
     Active Substance: NAPROXEN SODIUM
     Dosage: 1 DF, AS NEEDED (1 CAPSULE ORAL PRN)
     Route: 048
     Dates: end: 20161020
  24. SUTENT [Suspect]
     Active Substance: SUNITINIB MALATE
     Indication: RENAL CELL CARCINOMA
     Dosage: 12.5 MG, 1X/DAY
     Dates: start: 2005, end: 2010
  25. FLUZONE [FLUCONAZOLE] [Concomitant]
     Active Substance: FLUCONAZOLE
     Dosage: UNK
     Route: 030
     Dates: start: 202009
  26. INLYTA [Concomitant]
     Active Substance: AXITINIB
     Dosage: 3 MG, 2X/DAY
     Route: 048
     Dates: end: 20200828
  27. LEVOTHYROXINE SODIUM. [Concomitant]
     Active Substance: LEVOTHYROXINE SODIUM
     Dosage: 25 UG, DAILY
     Route: 048
  28. PRILOSEC [Concomitant]
     Active Substance: OMEPRAZOLE MAGNESIUM
     Dosage: UNK (TABLET, ENTERIC COATED)
     Route: 048
     Dates: start: 20200828
  29. PREDNISONE. [Concomitant]
     Active Substance: PREDNISONE
     Dosage: 20 MG, DAILY
     Route: 048
     Dates: start: 20200324, end: 20200529
  30. PAXIL [PIROXICAM] [Concomitant]
     Active Substance: PIROXICAM
     Dosage: 10 MG, DAILY
     Route: 048
  31. SUTENT [Suspect]
     Active Substance: SUNITINIB MALATE
     Dosage: 5 MG, CYCLIC (5MG TABLET ORAL TWICE A DAY) FOR 21 DAYS)
     Route: 048
     Dates: start: 20190924, end: 20200624
  32. DEXAMETHASONE. [Concomitant]
     Active Substance: DEXAMETHASONE
     Dosage: 4 MG, 2X/DAY
     Route: 048
     Dates: start: 20200529, end: 20200828
  33. DENOSUMAB [Concomitant]
     Active Substance: DENOSUMAB
     Dosage: 120 MG, DAILY (1.70 ML?120 MG DAILY FOR 1 DAY)
     Route: 058
     Dates: start: 20191220, end: 20210120
  34. SENOKOT?S [Concomitant]
     Active Substance: DOCUSATE SODIUM\SENNOSIDES
     Dosage: UNK
     Dates: start: 20201228
  35. MAGNESIUM OXIDE. [Concomitant]
     Active Substance: MAGNESIUM OXIDE
     Dosage: UNK
     Dates: start: 20200728
  36. ROBAXIN [Concomitant]
     Active Substance: METHOCARBAMOL
     Dosage: 500 MG, AS NEEDED
     Dates: end: 20200422
  37. ENTRESTO [Concomitant]
     Active Substance: SACUBITRIL\VALSARTAN
     Dosage: 1 DF, 2X/DAY (1 (24?26 MG) TABLET)
     Route: 048
     Dates: end: 20200828
  38. DEXTROSE. [Concomitant]
     Active Substance: DEXTROSE
     Dosage: 1 ML (NS  0.9% (SOLUTION) 1 ML OVER 2 HOURS FOR 1 DAY)
     Route: 042
     Dates: start: 20200211, end: 20200626
  39. INLYTA [Concomitant]
     Active Substance: AXITINIB
     Dosage: 3 MG, 2X/DAY
     Route: 048
     Dates: start: 20191028, end: 20200625
  40. PREDNISONE. [Concomitant]
     Active Substance: PREDNISONE
     Dosage: 10 MG, DAILY
     Route: 048
  41. LISINOPRIL. [Concomitant]
     Active Substance: LISINOPRIL
     Dosage: UNK
     Route: 048
     Dates: end: 20200828
  42. AMOXICILLIN [AMOXICILLIN SODIUM] [Concomitant]
     Active Substance: AMOXICILLIN SODIUM
     Dosage: 500 MG, 2X/DAY (1 CAPSULE ORAL TWO TIMES A DAY))
     Route: 048
     Dates: end: 20190116
  43. LIPITOR [Concomitant]
     Active Substance: ATORVASTATIN CALCIUM
     Dosage: 1 DF, DAILY
     Route: 048
  44. HYDROCODONE/ACETAMINOPHEN [Concomitant]
     Active Substance: ACETAMINOPHEN\HYDROCODONE
     Dosage: UNK
     Dates: start: 20190826
  45. MARINOL [ALLOPURINOL] [Concomitant]
     Active Substance: ALLOPURINOL
     Dosage: 2.5 MG, 2X/DAY
     Route: 048
     Dates: start: 20200131, end: 20201111
  46. NEXIUM I.V. [Concomitant]
     Active Substance: ESOMEPRAZOLE SODIUM
     Dosage: 20 MG, DAILY
     Route: 048
     Dates: end: 20200828

REACTIONS (4)
  - Oral pain [Recovering/Resolving]
  - Illness [Recovered/Resolved]
  - Mouth ulceration [Unknown]
  - Skin disorder [Not Recovered/Not Resolved]

NARRATIVE: CASE EVENT DATE: 2005
